FAERS Safety Report 9463593 (Version 1)
Quarter: 2013Q3

REPORT INFORMATION
  Report Type: Spontaneous
  Country: US (occurrence: None)
  Receive Date: 20130815
  Receipt Date: 20130815
  Transmission Date: 20140515
  Serious: No
  Sender: FDA-Public Use
  Company Number: None

PATIENT
  Age: 53 Year
  Sex: Male

DRUGS (1)
  1. TECFIDERA [Suspect]
     Indication: MULTIPLE SCLEROSIS
     Dosage: 120MG BID PO
     Route: 048
     Dates: start: 20130727, end: 20130803

REACTIONS (3)
  - Aphagia [None]
  - Gastrooesophageal reflux disease [None]
  - Condition aggravated [None]
